FAERS Safety Report 13682250 (Version 1)
Quarter: 2017Q2

REPORT INFORMATION
  Report Type: Spontaneous
  Country: US (occurrence: US)
  Receive Date: 20170623
  Receipt Date: 20170623
  Transmission Date: 20170830
  Serious: No
  Sender: FDA-Public Use
  Company Number: US-IPSEN BIOPHARMACEUTICALS, INC.-2016-06471

PATIENT
  Sex: Female
  Weight: 50 kg

DRUGS (1)
  1. DYSPORT [Suspect]
     Active Substance: ABOBOTULINUMTOXINA
     Indication: SKIN WRINKLING
     Dosage: 150 UNITS
     Route: 030
     Dates: start: 20160415, end: 20160415

REACTIONS (3)
  - Overdose [Unknown]
  - Product preparation error [Unknown]
  - Drug effect decreased [Unknown]
